FAERS Safety Report 10029428 (Version 2)
Quarter: 2014Q2

REPORT INFORMATION
  Report Type: Report from Study
  Country: AR (occurrence: AR)
  Receive Date: 20140322
  Receipt Date: 20140402
  Transmission Date: 20141212
  Serious: Yes (Hospitalization)
  Sender: FDA-Public Use
  Company Number: PHHY2014AR034501

PATIENT
  Sex: Female

DRUGS (1)
  1. ACLASTA [Suspect]
     Indication: OSTEOPOROSIS
     Dosage: UNK UKN, UNK
     Route: 042
     Dates: end: 2013

REACTIONS (7)
  - Blood sodium decreased [Recovered/Resolved]
  - Blood potassium decreased [Recovered/Resolved]
  - Osteoarthritis [Not Recovered/Not Resolved]
  - Back pain [Recovered/Resolved]
  - Memory impairment [Recovered/Resolved]
  - Dehydration [Recovered/Resolved]
  - Pain in extremity [Not Recovered/Not Resolved]
